FAERS Safety Report 5047826-1 (Version None)
Quarter: 2006Q3

REPORT INFORMATION
  Report Type: 
  Country: None (occurrence: None)
  Receive Date: 20060705
  Receipt Date: 20060626
  Transmission Date: 20061208
  Serious: Yes (Hospitalization, Other)
  Sender: FDA-Public Use
  Company Number: 2006AL001604

PATIENT
  Age: 68 Year
  Sex: Male

DRUGS (7)
  1. AMANTADINE HCL [Suspect]
  2. CLONAZEPAM [Suspect]
  3. TRAZODONE HCL [Suspect]
  4. VENLAFAXINE HCL [Suspect]
     Dosage: 75 MG;QD
  5. FLUOXETINE [Concomitant]
  6. BUSPIRONE HCL [Concomitant]
  7. PROPRANOLOL [Concomitant]

REACTIONS (2)
  - NEUROLEPTIC MALIGNANT SYNDROME [None]
  - RHABDOMYOLYSIS [None]
